FAERS Safety Report 8587489-1 (Version None)
Quarter: 2012Q3

REPORT INFORMATION
  Report Type: 
  Country: None (occurrence: None)
  Receive Date: 20120810
  Receipt Date: 20120802
  Transmission Date: 20120928
  Serious: Yes (Hospitalization)
  Sender: FDA-Public Use
  Company Number: IL-ABBOTT-12P-082-0959166-00

PATIENT
  Sex: Male
  Weight: 62.5 kg

DRUGS (6)
  1. HUMIRA [Suspect]
     Indication: ANKYLOSING SPONDYLITIS
     Route: 058
     Dates: start: 20090401
  2. HUMIRA [Suspect]
     Indication: CROHN'S DISEASE
  3. IRON [Concomitant]
     Indication: PRODUCT USED FOR UNKNOWN INDICATION
  4. CALCIUM +VIT D [Concomitant]
     Indication: PRODUCT USED FOR UNKNOWN INDICATION
  5. IMURAN [Concomitant]
     Indication: PRODUCT USED FOR UNKNOWN INDICATION
  6. CALCIUM [Concomitant]
     Indication: PRODUCT USED FOR UNKNOWN INDICATION

REACTIONS (9)
  - ASTHENIA [None]
  - CONDITION AGGRAVATED [None]
  - WEIGHT DECREASED [None]
  - BACK PAIN [None]
  - BLOOD CALCIUM DECREASED [None]
  - VITAMIN D DECREASED [None]
  - LOSS OF CONSCIOUSNESS [None]
  - BLOOD IRON DECREASED [None]
  - DECREASED APPETITE [None]
